FAERS Safety Report 5526114-0 (Version None)
Quarter: 2007Q4

REPORT INFORMATION
  Report Type: 
  Country: None (occurrence: None)
  Receive Date: 20071120
  Receipt Date: 20071105
  Transmission Date: 20080405
  Serious: Yes (Death)
  Sender: FDA-Public Use
  Company Number: 2007002149

PATIENT
  Age: 52 Year
  Sex: Female

DRUGS (1)
  1. TARCEVA [Suspect]
     Dosage: (150 MG, QD), ORAL
     Route: 048

REACTIONS (1)
  - DEATH [None]
